FAERS Safety Report 8379199-0 (Version None)
Quarter: 2012Q2

REPORT INFORMATION
  Report Type: 
  Country: None (occurrence: None)
  Receive Date: 20120523
  Receipt Date: 20120509
  Transmission Date: 20120825
  Serious: Yes (Hospitalization)
  Sender: FDA-Public Use
  Company Number: NL-RANBAXY-2012RR-56418

PATIENT
  Sex: Male
  Weight: 84 kg

DRUGS (1)
  1. SIMVASTATIN [Suspect]
     Indication: PRODUCT USED FOR UNKNOWN INDICATION
     Dosage: 40 MG, QD
     Route: 065
     Dates: start: 20110922, end: 20120109

REACTIONS (3)
  - NAUSEA [None]
  - DECREASED APPETITE [None]
  - DIARRHOEA [None]
